FAERS Safety Report 18440335 (Version 2)
Quarter: 2021Q2

REPORT INFORMATION
  Report Type: Spontaneous
  Country: JP (occurrence: JP)
  Receive Date: 20201029
  Receipt Date: 20210409
  Transmission Date: 20210717
  Serious: Yes (Other)
  Sender: FDA-Public Use
  Company Number: JP-ROCHE-2703281

PATIENT
  Age: 75 Year
  Sex: Female

DRUGS (39)
  1. LUCENTIS [Suspect]
     Active Substance: RANIBIZUMAB
     Dosage: RIGHT EYE
     Route: 031
  2. AFLIBERCEPT [Concomitant]
     Active Substance: AFLIBERCEPT
     Dosage: LEFT EYE
     Route: 047
  3. AFLIBERCEPT [Concomitant]
     Active Substance: AFLIBERCEPT
     Dosage: LEFT EYE
     Route: 047
  4. AFLIBERCEPT [Concomitant]
     Active Substance: AFLIBERCEPT
     Dosage: LEFT EYE
     Route: 047
  5. AFLIBERCEPT [Concomitant]
     Active Substance: AFLIBERCEPT
     Dosage: LEFT EYE
     Route: 047
  6. AFLIBERCEPT [Concomitant]
     Active Substance: AFLIBERCEPT
     Dosage: RIGHT EYE
     Route: 047
  7. LUCENTIS [Suspect]
     Active Substance: RANIBIZUMAB
     Dosage: RIGHT EYE
     Route: 031
  8. LUCENTIS [Suspect]
     Active Substance: RANIBIZUMAB
     Dosage: RIGHT EYE
     Route: 031
  9. LUCENTIS [Suspect]
     Active Substance: RANIBIZUMAB
     Dosage: LEFT EYE
     Route: 031
  10. AFLIBERCEPT [Concomitant]
     Active Substance: AFLIBERCEPT
     Dosage: LEFT EYE
     Route: 047
  11. AFLIBERCEPT [Concomitant]
     Active Substance: AFLIBERCEPT
     Dosage: RIGHT EYE
     Route: 047
  12. LUCENTIS [Suspect]
     Active Substance: RANIBIZUMAB
     Dosage: LEFT EYE
     Route: 031
  13. LUCENTIS [Suspect]
     Active Substance: RANIBIZUMAB
     Dosage: LEFT EYE
     Route: 031
  14. AFLIBERCEPT [Concomitant]
     Active Substance: AFLIBERCEPT
     Dosage: LEFT EYE
     Route: 047
  15. LUCENTIS [Suspect]
     Active Substance: RANIBIZUMAB
     Indication: AGE-RELATED MACULAR DEGENERATION
     Dosage: LEFT EYE
     Route: 031
  16. LUCENTIS [Suspect]
     Active Substance: RANIBIZUMAB
     Dosage: LEFT EYE
     Route: 031
  17. LUCENTIS [Suspect]
     Active Substance: RANIBIZUMAB
     Dosage: LEFT EYE
     Route: 031
  18. LUCENTIS [Suspect]
     Active Substance: RANIBIZUMAB
     Dosage: LEFT EYE
     Route: 031
  19. LUCENTIS [Suspect]
     Active Substance: RANIBIZUMAB
     Dosage: LEFT EYE
     Route: 031
  20. AFLIBERCEPT [Concomitant]
     Active Substance: AFLIBERCEPT
     Indication: AGE-RELATED MACULAR DEGENERATION
     Dosage: LEFT EYE
     Route: 047
  21. AFLIBERCEPT [Concomitant]
     Active Substance: AFLIBERCEPT
     Dosage: LEFT EYE
     Route: 047
  22. AFLIBERCEPT [Concomitant]
     Active Substance: AFLIBERCEPT
     Dosage: LEFT EYE
     Route: 047
  23. AFLIBERCEPT [Concomitant]
     Active Substance: AFLIBERCEPT
     Dosage: LEFT EYE
     Route: 047
  24. LUCENTIS [Suspect]
     Active Substance: RANIBIZUMAB
     Dosage: RIGHT EYE
     Route: 031
  25. LUCENTIS [Suspect]
     Active Substance: RANIBIZUMAB
     Dosage: RIGHT EYE
     Route: 031
  26. LUCENTIS [Suspect]
     Active Substance: RANIBIZUMAB
     Dosage: RIGHT EYE
     Route: 031
  27. AFLIBERCEPT [Concomitant]
     Active Substance: AFLIBERCEPT
     Dosage: LEFT EYE
     Route: 047
  28. AFLIBERCEPT [Concomitant]
     Active Substance: AFLIBERCEPT
     Dosage: RIGHT EYE
     Route: 047
  29. LUCENTIS [Suspect]
     Active Substance: RANIBIZUMAB
     Dosage: RIGHT EYE
     Route: 031
  30. AFLIBERCEPT [Concomitant]
     Active Substance: AFLIBERCEPT
     Dosage: RIGHT EYE
     Route: 047
  31. AFLIBERCEPT [Concomitant]
     Active Substance: AFLIBERCEPT
     Dosage: LEFT EYE
     Route: 047
  32. LUCENTIS [Suspect]
     Active Substance: RANIBIZUMAB
     Dosage: LEFT EYE
     Route: 031
  33. LUCENTIS [Suspect]
     Active Substance: RANIBIZUMAB
     Dosage: LEFT EYE
     Route: 031
  34. AFLIBERCEPT [Concomitant]
     Active Substance: AFLIBERCEPT
     Dosage: LEFT EYE
     Route: 047
  35. AFLIBERCEPT [Concomitant]
     Active Substance: AFLIBERCEPT
     Dosage: LEFT EYE
     Route: 047
  36. LUCENTIS [Suspect]
     Active Substance: RANIBIZUMAB
     Dosage: RIGHT EYE
     Route: 031
  37. AFLIBERCEPT [Concomitant]
     Active Substance: AFLIBERCEPT
     Dosage: LEFT EYE
     Route: 047
  38. AFLIBERCEPT [Concomitant]
     Active Substance: AFLIBERCEPT
     Dosage: RIGHT  EYE
     Route: 047
  39. AFLIBERCEPT [Concomitant]
     Active Substance: AFLIBERCEPT
     Dosage: RIGHT EYE
     Route: 047

REACTIONS (1)
  - Disease progression [Unknown]
